FAERS Safety Report 4314477-3 (Version None)
Quarter: 2004Q1

REPORT INFORMATION
  Report Type: 
  Country: None (occurrence: None)
  Receive Date: 20040308
  Receipt Date: 20040226
  Transmission Date: 20041129
  Serious: Yes (Hospitalization, Disabling, Other)
  Sender: FDA-Public Use
  Company Number: 2004-02-1001

PATIENT
  Age: 81 Year
  Sex: Male

DRUGS (9)
  1. QVAR AUTHOHALER HFA (BECLOMETHASONE DIPROPIONATE) ORAL AEROSOL ^LIKE V [Suspect]
     Indication: ASTHMA
     Dosage: 100 MCG QD; ORAL AER INH
     Route: 055
     Dates: start: 20030804, end: 20031020
  2. SALMETEROL XINAFOATE [Concomitant]
  3. CALCIUM POLYSTYRENE SULFONATE [Concomitant]
  4. AMLODIPINE BESYLATE [Concomitant]
  5. SIMVASTATIN [Concomitant]
  6. FUDOSTEINE [Concomitant]
  7. ALLOPURINOL [Concomitant]
  8. UNSPECIFIED THERAPEUTIC AGENT [Concomitant]
  9. UNSPECIFIED THERAPEUTIC AGENT [Concomitant]

REACTIONS (5)
  - ASTHMA [None]
  - CONDITION AGGRAVATED [None]
  - DISEASE PROGRESSION [None]
  - DRUG INEFFECTIVE [None]
  - RENAL FAILURE CHRONIC [None]
